FAERS Safety Report 7791862-9 (Version None)
Quarter: 2011Q4

REPORT INFORMATION
  Report Type: 
  Country: None (occurrence: None)
  Receive Date: 20111003
  Receipt Date: 20110928
  Transmission Date: 20120403
  Serious: Yes (Other)
  Sender: FDA-Public Use
  Company Number: US-SANOFI-AVENTIS-2011SA051511

PATIENT
  Age: 43 Year
  Sex: Female
  Weight: 90.9 kg

DRUGS (7)
  1. ALLEGRA D 24 HOUR [Suspect]
     Route: 048
     Dates: start: 20110101
  2. FEXOFENADINE HYDROCHLORIDE/PSEUDOEPHEDRINE HYDROCHLORIDE [Suspect]
     Route: 048
  3. POTASSIUM [Concomitant]
  4. VITAMIN D [Concomitant]
  5. LEXAPRO [Concomitant]
  6. TRAZODONE HYDROCHLORIDE [Concomitant]
  7. ALLEGRA D 24 HOUR [Suspect]
     Indication: SINUS DISORDER
     Route: 048
     Dates: start: 20110101

REACTIONS (3)
  - MEDICATION RESIDUE [None]
  - UNEVALUABLE EVENT [None]
  - HAEMORRHOIDS [None]
